FAERS Safety Report 13339602 (Version 1)
Quarter: 2017Q1

REPORT INFORMATION
  Report Type: Spontaneous
  Country: US (occurrence: US)
  Receive Date: 20170315
  Receipt Date: 20170315
  Transmission Date: 20170428
  Serious: Yes (Other)
  Sender: FDA-Public Use
  Company Number: US-B.I. PHARMACEUTICALS,INC./RIDGEFIELD-2017-BI-013561

PATIENT
  Age: 52 Year
  Sex: Male

DRUGS (2)
  1. FLECANIDE [Concomitant]
     Active Substance: FLECAINIDE
     Indication: ATRIAL FIBRILLATION
     Route: 065
     Dates: start: 201702
  2. PRADAXA [Suspect]
     Active Substance: DABIGATRAN ETEXILATE MESYLATE
     Indication: ATRIAL FIBRILLATION
     Dosage: 1 CAPSULE BID;  FORM STRENGTH: 150 MG; FORMULATION: CAPSULE? ADMINISTRATION CORRECT? YES
     Route: 048
     Dates: start: 201701

REACTIONS (3)
  - Renal cancer stage IV [Not Recovered/Not Resolved]
  - Pneumothorax [Recovered/Resolved]
  - Bullous lung disease [Recovered/Resolved]

NARRATIVE: CASE EVENT DATE: 201702
